FAERS Safety Report 5615587-0 (Version None)
Quarter: 2008Q1

REPORT INFORMATION
  Report Type: 
  Country: None (occurrence: None)
  Receive Date: 20080206
  Receipt Date: 20080129
  Transmission Date: 20080703
  Serious: Yes (Hospitalization)
  Sender: FDA-Public Use
  Company Number: US-ABBOTT-08P-163-0435937-00

PATIENT
  Sex: Female
  Weight: 77.18 kg

DRUGS (11)
  1. SYNTHROID [Suspect]
     Indication: HYPERTHYROIDISM
     Route: 048
     Dates: start: 20030101
  2. SYNTHROID [Suspect]
     Route: 048
  3. SYNTHROID [Suspect]
     Route: 048
  4. SYNTHROID [Suspect]
     Route: 048
     Dates: start: 19880101
  5. SYNTHROID [Suspect]
     Route: 048
     Dates: start: 20071101, end: 20080124
  6. SYNTHROID [Suspect]
     Route: 048
     Dates: start: 20080125
  7. DIAZEPAM [Concomitant]
     Indication: MUSCLE TWITCHING
     Route: 048
     Dates: start: 20071101
  8. MAVIC [Concomitant]
     Indication: HYPERTENSION
     Route: 048
  9. OXYCODONE HCL [Concomitant]
     Indication: PAIN MANAGEMENT
     Route: 048
  10. FLUTICASONE PROPIONATE [Concomitant]
     Indication: EAR DISCOMFORT
     Dosage: NASAL SPRAY
     Route: 055
     Dates: start: 20080127, end: 20080127
  11. COLASE [Concomitant]
     Indication: CONSTIPATION

REACTIONS (8)
  - BLOOD PRESSURE INADEQUATELY CONTROLLED [None]
  - EAR DISCOMFORT [None]
  - EAR INFECTION [None]
  - GASTRITIS [None]
  - INTERVERTEBRAL DISC PROTRUSION [None]
  - MUSCLE TWITCHING [None]
  - OCULAR HYPERAEMIA [None]
  - PAIN [None]
